FAERS Safety Report 7504781-X (Version None)
Quarter: 2011Q2

REPORT INFORMATION
  Report Type: 
  Country: None (occurrence: None)
  Receive Date: 20110525
  Receipt Date: 20110322
  Transmission Date: 20111010
  Serious: No
  Sender: FDA-Public Use
  Company Number: US-AMGEN-USASP2011012159

PATIENT
  Age: 70 Year
  Sex: Female

DRUGS (22)
  1. MULTIPLE VITAMINS [Concomitant]
  2. METOPROLOL TARTRATE [Concomitant]
  3. IMDUR [Concomitant]
  4. FER-IN-SOL [Concomitant]
  5. ASPIRIN [Concomitant]
  6. BENICAR [Concomitant]
  7. ARANESP [Suspect]
     Indication: RENAL FAILURE CHRONIC
     Dosage: 200 A?G, UNK
     Route: 058
     Dates: start: 20110224, end: 20110224
  8. CALCIUM CARBONATE [Concomitant]
  9. TYLENOL (CAPLET) [Concomitant]
  10. LASIX [Concomitant]
  11. OXYGEN [Concomitant]
  12. PERCOCET [Concomitant]
  13. EPIPEN                             /00003901/ [Concomitant]
  14. VITAMIN D [Concomitant]
  15. ACTONEL [Concomitant]
  16. COLACE [Concomitant]
  17. SENOKOT [Concomitant]
  18. CARVEDILOL [Concomitant]
  19. PROVENTIL                          /00139501/ [Concomitant]
  20. CRESTOR [Concomitant]
  21. FOLIC ACID [Concomitant]
  22. JANUVIA [Concomitant]

REACTIONS (4)
  - BLOOD CREATININE INCREASED [None]
  - PALPITATIONS [None]
  - HEART RATE IRREGULAR [None]
  - SERUM FERRITIN INCREASED [None]
